FAERS Safety Report 6100724-4 (Version None)
Quarter: 2009Q1

REPORT INFORMATION
  Report Type: 
  Country: None (occurrence: None)
  Receive Date: 20090303
  Receipt Date: 20090225
  Transmission Date: 20090719
  Serious: Yes (Other)
  Sender: FDA-Public Use
  Company Number: US-B.I. PHARMACEUTICALS,INC./RIDGEFIELD-2008-BP-17516BP

PATIENT
  Age: 62 Year
  Sex: Male

DRUGS (14)
  1. SPIRIVA [Suspect]
     Indication: CHRONIC OBSTRUCTIVE PULMONARY DISEASE
     Dosage: 18MCG
     Route: 055
     Dates: start: 20040101
  2. SPIRIVA [Suspect]
     Indication: DYSPNOEA
  3. SYMCORT [Concomitant]
  4. ATENOLOL [Concomitant]
     Indication: HYPERTENSION
     Route: 048
  5. ZOLOFT [Concomitant]
     Indication: DEPRESSION
     Route: 048
  6. CRESTOR [Concomitant]
     Indication: BLOOD CHOLESTEROL INCREASED
     Route: 048
  7. ALBUTEROL [Concomitant]
     Indication: CHRONIC OBSTRUCTIVE PULMONARY DISEASE
     Route: 055
  8. VITAMIN D [Concomitant]
     Indication: OSTEOPOROSIS
     Route: 048
  9. NEXIUM [Concomitant]
  10. LIPITOR [Concomitant]
  11. ABRUXOL [Concomitant]
  12. ASPIRIN [Concomitant]
  13. ALTACE [Concomitant]
  14. CALCIUM [Concomitant]

REACTIONS (2)
  - DYSPNOEA [None]
  - INTRACRANIAL ANEURYSM [None]
